FAERS Safety Report 6366703-7 (Version None)
Quarter: 2009Q3

REPORT INFORMATION
  Report Type: 
  Country: None (occurrence: None)
  Receive Date: 20090921
  Receipt Date: 20090910
  Transmission Date: 20100115
  Serious: Yes (Other)
  Sender: FDA-Public Use
  Company Number: US-PFIZER INC-2006056264

PATIENT
  Sex: Female
  Weight: 83.9 kg

DRUGS (14)
  1. PROVERA [Suspect]
     Indication: HORMONE REPLACEMENT THERAPY
     Dosage: 2.5 MG, UNK
     Route: 048
     Dates: start: 19940901, end: 19980101
  2. PROVERA [Suspect]
     Dosage: 5 MG, UNK
     Route: 048
     Dates: start: 19940901, end: 19980101
  3. MEDROXYPROGESTERONE AND MEDROXYPROGESTERONE ACETATE [Suspect]
     Indication: HORMONE REPLACEMENT THERAPY
     Dosage: UNK
     Route: 048
     Dates: start: 19940901, end: 19980101
  4. ESTRACE [Suspect]
     Indication: HORMONE REPLACEMENT THERAPY
     Dosage: 1 MG, UNK
     Route: 048
     Dates: start: 19940901, end: 19980101
  5. ESTRADIOL [Suspect]
     Indication: HORMONE REPLACEMENT THERAPY
     Dosage: UNK MG, UNK
     Route: 065
     Dates: start: 19991201, end: 20020501
  6. PREMARIN [Suspect]
     Indication: HORMONE REPLACEMENT THERAPY
     Route: 065
     Dates: start: 19940901, end: 20020401
  7. PROGESTERONE [Suspect]
     Indication: HORMONE REPLACEMENT THERAPY
     Dosage: 100 MG, UNK
     Route: 048
     Dates: start: 19971222, end: 20000301
  8. PROGESTERONE [Suspect]
     Dosage: 100 MG, UNK
     Dates: start: 20000101, end: 20020501
  9. ESTRING [Suspect]
     Indication: HORMONE REPLACEMENT THERAPY
     Dosage: 2 MG, UNK
     Route: 067
     Dates: start: 20030801, end: 20031101
  10. ESTRING [Suspect]
     Dosage: 2 MG, UNK
     Route: 067
     Dates: start: 20050101, end: 20050701
  11. CLONAZEPAM [Concomitant]
     Indication: SOMNOLENCE
     Dosage: UNK
     Dates: start: 19970101, end: 20020101
  12. CHOLINE MAGNESIUM TRISALICYLATE [Concomitant]
     Dosage: UNK
     Dates: start: 20000101
  13. METHOCARBAMOL [Concomitant]
     Indication: ARTHRITIS
     Dosage: UNK
     Dates: start: 20000101
  14. ERGOTAMINE [Concomitant]
     Indication: MIGRAINE
     Dosage: UNK
     Dates: end: 20090201

REACTIONS (1)
  - BREAST CANCER FEMALE [None]
